FAERS Safety Report 12808722 (Version 1)
Quarter: 2016Q4

REPORT INFORMATION
  Report Type: Spontaneous
  Country: US (occurrence: US)
  Receive Date: 20161004
  Receipt Date: 20161004
  Transmission Date: 20170207
  Serious: Yes (Hospitalization, Other)
  Sender: FDA-Public Use
  Company Number: US-SAOL THERAPEUTICS-2016SAO00810

PATIENT
  Sex: Male

DRUGS (12)
  1. FENTANYL. [Suspect]
     Active Substance: FENTANYL
     Route: 037
  2. FENTANYL. [Suspect]
     Active Substance: FENTANYL
     Dosage: 9 ?G, \DAY
     Dates: start: 2016
  3. LIDOCAINE. [Suspect]
     Active Substance: LIDOCAINE
     Route: 037
  4. BUPIVACAINE. [Suspect]
     Active Substance: BUPIVACAINE
     Route: 037
  5. OTHER UNSPECIFIED MEDICATION FOR PUMP [Suspect]
     Active Substance: UNSPECIFIED INGREDIENT
  6. DILAUDID [Suspect]
     Active Substance: HYDROMORPHONE HYDROCHLORIDE
     Route: 037
  7. UNSPECIFIED ORAL PAIN MEDICATION [Suspect]
     Active Substance: UNSPECIFIED INGREDIENT
     Route: 048
  8. MORPHINE [Suspect]
     Active Substance: MORPHINE
     Route: 037
  9. BACLOFEN. [Suspect]
     Active Substance: BACLOFEN
     Indication: PAIN
     Dosage: UNK
     Route: 037
     Dates: end: 2013
  10. BACLOFEN. [Suspect]
     Active Substance: BACLOFEN
     Indication: POST LAMINECTOMY SYNDROME
  11. BACLOFEN. [Suspect]
     Active Substance: BACLOFEN
     Indication: SPINAL PAIN
  12. CLONIDINE. [Suspect]
     Active Substance: CLONIDINE
     Route: 037

REACTIONS (13)
  - Capillary fragility [Unknown]
  - Peripheral swelling [Unknown]
  - Feeling hot [None]
  - Cold sweat [None]
  - Diaphragmatic hernia [Recovered/Resolved]
  - Diaphragmatic rupture [Unknown]
  - Umbilical hernia [Recovered/Resolved]
  - Drug withdrawal syndrome [Unknown]
  - Paraesthesia [Unknown]
  - Device failure [None]
  - Chronic obstructive pulmonary disease [Recovered/Resolved]
  - Respiratory disorder [Recovered/Resolved]
  - Fall [Unknown]

NARRATIVE: CASE EVENT DATE: 1997
